FAERS Safety Report 22631887 (Version 1)
Quarter: 2023Q2

REPORT INFORMATION
  Report Type: Spontaneous
  Country: PL (occurrence: PL)
  Receive Date: 20230623
  Receipt Date: 20230623
  Transmission Date: 20230722
  Serious: Yes (Other)
  Sender: FDA-Public Use
  Company Number: PL-002147023-NVSC2023PL138416

PATIENT
  Age: 31 Year
  Sex: Female

DRUGS (5)
  1. RUXOLITINIB [Suspect]
     Active Substance: RUXOLITINIB
     Indication: Product used for unknown indication
     Dosage: 10 MG, BID (2X10MG/DAILY FOR 6 DAYS)
     Route: 065
     Dates: start: 20220617
  2. RUXOLITINIB [Suspect]
     Active Substance: RUXOLITINIB
     Dosage: 5 MG, BID (2X5MG/ DAILY)
     Route: 065
     Dates: end: 202211
  3. CYCLOSPORINE [Suspect]
     Active Substance: CYCLOSPORINE
     Indication: Product used for unknown indication
     Dosage: UNK
     Route: 065
     Dates: end: 202210
  4. AZATHIOPRINE [Concomitant]
     Active Substance: AZATHIOPRINE
     Indication: Product used for unknown indication
     Dosage: UNK
     Route: 065
     Dates: start: 202210, end: 202304
  5. SOLU-MEDROL [Concomitant]
     Active Substance: METHYLPREDNISOLONE SODIUM SUCCINATE
     Indication: Product used for unknown indication
     Dosage: UNK
     Route: 065

REACTIONS (18)
  - Cholecystitis chronic [Unknown]
  - Hyperplasia [Unknown]
  - Immunosuppression [Unknown]
  - Cytomegalovirus infection [Unknown]
  - Phlebosclerosis [Unknown]
  - Hepatic neoplasm [Unknown]
  - Liver disorder [Unknown]
  - Blood bilirubin abnormal [Unknown]
  - Eosinophilia [Unknown]
  - Hepatic steatosis [Unknown]
  - Minimal residual disease [Unknown]
  - Infection [Unknown]
  - Weight increased [Unknown]
  - Colitis [Unknown]
  - Vomiting [Unknown]
  - Nausea [Unknown]
  - Abdominal pain [Unknown]
  - Diarrhoea [Unknown]

NARRATIVE: CASE EVENT DATE: 20221201
